FAERS Safety Report 6829763-2 (Version None)
Quarter: 2010Q3

REPORT INFORMATION
  Report Type: 
  Country: None (occurrence: None)
  Receive Date: 20100709
  Receipt Date: 20080411
  Transmission Date: 20110219
  Serious: Yes (Other)
  Sender: FDA-Public Use
  Company Number: US-PFIZER INC-2007008878

PATIENT
  Sex: Male
  Weight: 70.3 kg

DRUGS (9)
  1. CHANTIX [Suspect]
     Indication: EX-TOBACCO USER
     Dates: start: 20070101
  2. ADVAIR DISKUS 100/50 [Concomitant]
  3. TRICOR [Concomitant]
  4. ZETIA [Concomitant]
  5. CRESTOR [Concomitant]
  6. TRIOBE [Concomitant]
  7. FISH OIL [Concomitant]
  8. VITAMIN D [Concomitant]
  9. VITAMIN C [Concomitant]

REACTIONS (10)
  - ABDOMINAL DISCOMFORT [None]
  - CONSTIPATION [None]
  - DEPRESSED MOOD [None]
  - DIARRHOEA [None]
  - DISTURBANCE IN ATTENTION [None]
  - DRUG EFFECT INCREASED [None]
  - FATIGUE [None]
  - FEELING ABNORMAL [None]
  - FLATULENCE [None]
  - NAUSEA [None]
